FAERS Safety Report 9471393 (Version 2)
Quarter: 2014Q1

REPORT INFORMATION
  Report Type: Report from Study
  Country: DE (occurrence: DE)
  Receive Date: 20130822
  Receipt Date: 20140207
  Transmission Date: 20141002
  Serious: Yes (Hospitalization)
  Sender: FDA-Public Use
  Company Number: DE-ROCHE-1264499

PATIENT
  Age: 64 Year
  Sex: Female
  Weight: 70 kg

DRUGS (4)
  1. PEG-INTERFERON ALFA 2A [Suspect]
     Indication: CHRONIC HEPATITIS C
     Dosage: DOSE REDUCED
     Route: 058
     Dates: start: 20130618
  2. RIBAVIRIN [Suspect]
     Indication: CHRONIC HEPATITIS C
     Dosage: DOSE REDUCED
     Route: 048
     Dates: start: 20130618
  3. TELAPREVIR [Suspect]
     Indication: CHRONIC HEPATITIS C
     Dosage: DOSE REDUCED
     Route: 048
     Dates: start: 20130618
  4. TELAPREVIR [Suspect]
     Route: 048

REACTIONS (3)
  - Encephalopathy [Recovering/Resolving]
  - Drug intolerance [Unknown]
  - Fatigue [Unknown]
